FAERS Safety Report 6490968-4 (Version None)
Quarter: 2009Q4

REPORT INFORMATION
  Report Type: 
  Country: None (occurrence: None)
  Receive Date: 20091208
  Receipt Date: 20091022
  Transmission Date: 20100525
  Serious: Yes (Hospitalization)
  Sender: FDA-Public Use
  Company Number: 014978

PATIENT
  Sex: Male

DRUGS (3)
  1. PRIALT [Suspect]
     Indication: COMPLEX REGIONAL PAIN SYNDROME
     Dosage: 0.58 UG, ONCE/HOUR, INTRATHECAL; 0.13 UG, ONCE/HOUR, INTRATHECAL
     Route: 037
     Dates: start: 20070101
  2. OXYCODONE HCL [Concomitant]
  3. IBUPROFEN [Concomitant]

REACTIONS (9)
  - AMNESIA [None]
  - CEREBROVASCULAR ACCIDENT [None]
  - CONFUSIONAL STATE [None]
  - DYSARTHRIA [None]
  - FACIAL PALSY [None]
  - HYPERHIDROSIS [None]
  - MEDICAL DEVICE COMPLICATION [None]
  - TINNITUS [None]
  - TRANSIENT ISCHAEMIC ATTACK [None]
